FAERS Safety Report 9404053 (Version 1)
Quarter: 2013Q3

REPORT INFORMATION
  Report Type: Spontaneous
  Country: GB (occurrence: None)
  Receive Date: 20130712
  Receipt Date: 20130712
  Transmission Date: 20140515
  Serious: Yes (Other)
  Sender: FDA-Public Use
  Company Number: SYM-2013-05456

PATIENT
  Age: 46 Year
  Sex: Female

DRUGS (4)
  1. METRONIDAZOLE [Suspect]
     Indication: TOOTH ABSCESS
     Dosage: 200 MG, 3 IN 1 D
     Route: 048
     Dates: start: 20130610, end: 20130614
  2. FLUOXETINE (FLUOXETINE) (FLUOXETINE) [Concomitant]
  3. IBUPROFEN (IBUPROFEN) (IBUPROFEN) [Concomitant]
  4. PARACETAMOL (PARACETAMOL) (PARACETAMOL) [Concomitant]

REACTIONS (4)
  - Palpitations [None]
  - Dyspnoea [None]
  - Musculoskeletal stiffness [None]
  - Headache [None]
